FAERS Safety Report 10222378 (Version 1)
Quarter: 2014Q2

REPORT INFORMATION
  Report Type: Spontaneous
  Country: US (occurrence: US)
  Receive Date: 20140606
  Receipt Date: 20140606
  Transmission Date: 20141212
  Serious: No
  Sender: FDA-Public Use
  Company Number: US-009507513-1405USA010034

PATIENT
  Sex: Male

DRUGS (3)
  1. CLARITIN ORAL SOLUTION [Suspect]
     Indication: SEASONAL ALLERGY
     Dosage: UNK, UNKNOWN
     Route: 048
  2. CLARITIN ORAL SOLUTION [Suspect]
     Indication: PRODUCT USED FOR UNKNOWN INDICATION
  3. CLARITIN ORAL SOLUTION [Suspect]
     Indication: COUGH

REACTIONS (1)
  - Drug effect delayed [Unknown]
